FAERS Safety Report 25406340 (Version 1)
Quarter: 2025Q2

REPORT INFORMATION
  Report Type: Report from Study
  Country: US (occurrence: US)
  Receive Date: 20250606
  Receipt Date: 20250606
  Transmission Date: 20250716
  Serious: Yes (Hospitalization)
  Sender: SAREPTA THERAPEUTICS
  Company Number: US-SAREPTA THERAPEUTICS INC.-SRP2025-005969

PATIENT
  Age: 9 Year
  Sex: Male
  Weight: 29.1 kg

DRUGS (2)
  1. ELEVIDYS [Suspect]
     Active Substance: DELANDISTROGENE MOXEPARVOVEC-ROKL
     Indication: Duchenne muscular dystrophy
     Route: 042
     Dates: start: 20250108, end: 20250108
  2. VAMOROLONE [Concomitant]
     Active Substance: VAMOROLONE
     Indication: Duchenne muscular dystrophy
     Dosage: 152 MILLIGRAM, QD
     Route: 048

REACTIONS (4)
  - Troponin T increased [Recovered/Resolved]
  - Aspartate aminotransferase increased [Recovered/Resolved]
  - Troponin I increased [Recovered/Resolved]
  - Alanine aminotransferase increased [Recovered/Resolved]

NARRATIVE: CASE EVENT DATE: 20250421
